FAERS Safety Report 7959531-X (Version None)
Quarter: 2011Q4

REPORT INFORMATION
  Report Type: 
  Country: None (occurrence: None)
  Receive Date: 20111206
  Receipt Date: 20111121
  Transmission Date: 20120403
  Serious: Yes (Hospitalization)
  Sender: FDA-Public Use
  Company Number: NL-SANOFI-AVENTIS-F01200700790

PATIENT
  Age: 80 Year
  Sex: Male
  Weight: 105 kg

DRUGS (5)
  1. NITRAZEPAM [Concomitant]
     Indication: SLEEP DISORDER
     Route: 048
     Dates: start: 20060501
  2. LEUPROLIDE ACETATE [Suspect]
     Indication: PROSTATE CANCER
     Route: 058
     Dates: start: 20061218
  3. BICALUTAMIDE [Suspect]
     Indication: PROSTATE CANCER
     Route: 048
     Dates: start: 20061219, end: 20070117
  4. FUROSEMIDE [Concomitant]
     Route: 048
  5. CIPROFLOXACIN HYDROCHLORIDE [Concomitant]
     Indication: URINARY TRACT INFECTION
     Route: 048
     Dates: start: 20061215, end: 20061230

REACTIONS (2)
  - MYOCARDIAL ISCHAEMIA [None]
  - INFARCTION [None]
